FAERS Safety Report 7985756-3 (Version None)
Quarter: 2011Q4

REPORT INFORMATION
  Report Type: 
  Country: None (occurrence: None)
  Receive Date: 20111214
  Receipt Date: 20111206
  Transmission Date: 20120403
  Serious: Yes (Hospitalization)
  Sender: FDA-Public Use
  Company Number: DSA_48353_2011

PATIENT
  Age: 80 Year
  Sex: Female

DRUGS (6)
  1. DILTIAZEM [Suspect]
     Indication: PRODUCT USED FOR UNKNOWN INDICATION
     Dosage: 60 MG, QD, ORAL
     Route: 048
     Dates: start: 20110701, end: 20110801
  2. PREVISCAN /00789001/ [Suspect]
     Indication: CARDIOVASCULAR EVENT PROPHYLAXIS
     Dosage: 20 MG, QD, ORAL
     Route: 048
     Dates: start: 20110701, end: 20110801
  3. PREDNISOLONE [Concomitant]
  4. LASIX [Concomitant]
  5. DIGOXIN [Concomitant]
  6. NEXIUM [Concomitant]

REACTIONS (4)
  - TUBULOINTERSTITIAL NEPHRITIS [None]
  - RENAL FAILURE [None]
  - HYPONATRAEMIA [None]
  - GASTROINTESTINAL DISORDER [None]
